FAERS Safety Report 22114524 (Version 1)
Quarter: 2023Q1

REPORT INFORMATION
  Report Type: Spontaneous
  Country: CN (occurrence: CN)
  Receive Date: 20230320
  Receipt Date: 20230320
  Transmission Date: 20230418
  Serious: Yes (Other)
  Sender: FDA-Public Use
  Company Number: CN-SA-SAC20230315000001

PATIENT
  Age: 46 Year
  Sex: Male

DRUGS (2)
  1. CLOPIDOGREL BISULFATE [Suspect]
     Active Substance: CLOPIDOGREL BISULFATE
     Indication: Anticoagulant therapy
     Dosage: 600 MG, QD
     Route: 048
     Dates: start: 20230226, end: 20230226
  2. ASPIRIN [Suspect]
     Active Substance: ASPIRIN
     Indication: Anticoagulant therapy
     Dosage: 300MG: QD
     Route: 048
     Dates: start: 20230226, end: 20230226

REACTIONS (1)
  - Coagulation test abnormal [Unknown]

NARRATIVE: CASE EVENT DATE: 20230226
